FAERS Safety Report 12438910 (Version 1)
Quarter: 2016Q2

REPORT INFORMATION
  Report Type: Spontaneous
  Country: US (occurrence: US)
  Receive Date: 20160606
  Receipt Date: 20160606
  Transmission Date: 20160815
  Serious: No
  Sender: FDA-Public Use
  Company Number: US-DSJP-DSU-2015-131073

PATIENT
  Age: 52 Year
  Sex: Male
  Weight: 88.44 kg

DRUGS (2)
  1. BENICAR [Suspect]
     Active Substance: OLMESARTAN MEDOXOMIL
     Dosage: 20 MG, UNK
  2. BENICAR [Suspect]
     Active Substance: OLMESARTAN MEDOXOMIL
     Indication: HYPERTENSION
     Dosage: 40 MG, UNK
     Dates: start: 200801, end: 201411

REACTIONS (14)
  - Hernia [Unknown]
  - Renal cyst [Unknown]
  - Polyp [Unknown]
  - Malabsorption [Recovered/Resolved]
  - Oesophagitis [Unknown]
  - Impaired gastric emptying [Unknown]
  - Cholelithiasis [Unknown]
  - Hepatomegaly [Unknown]
  - Hiatus hernia [Unknown]
  - Hepatic steatosis [Unknown]
  - Diverticulum intestinal [Unknown]
  - Haemorrhoids [Unknown]
  - Constipation [Recovered/Resolved]
  - Anxiety [Unknown]

NARRATIVE: CASE EVENT DATE: 200807
